FAERS Safety Report 7554557-2 (Version None)
Quarter: 2011Q2

REPORT INFORMATION
  Report Type: 
  Country: None (occurrence: None)
  Receive Date: 20110617
  Receipt Date: 20110606
  Transmission Date: 20111010
  Serious: Yes (Other)
  Sender: FDA-Public Use
  Company Number: US-ROCHE-764402

PATIENT
  Sex: Female
  Weight: 46.3 kg

DRUGS (2)
  1. ACCUTANE [Suspect]
     Indication: ACNE
     Route: 065
     Dates: start: 19900101
  2. ACCUTANE [Suspect]
     Route: 065
     Dates: start: 19930101

REACTIONS (7)
  - HAEMORRHOIDS [None]
  - PERIRECTAL ABSCESS [None]
  - IRRITABLE BOWEL SYNDROME [None]
  - INFLAMMATORY BOWEL DISEASE [None]
  - DEPRESSION [None]
  - OSTEOARTHRITIS [None]
  - GASTROINTESTINAL MOTILITY DISORDER [None]
